FAERS Safety Report 12930689 (Version 1)
Quarter: 2016Q4

REPORT INFORMATION
  Report Type: Spontaneous
  Country: US (occurrence: US)
  Receive Date: 20161110
  Receipt Date: 20161110
  Transmission Date: 20170207
  Serious: No
  Sender: FDA-Public Use
  Company Number: US-VANDA PHARMACEUTICALS, INC-2016TASUS001349

PATIENT
  Age: 48 Year
  Sex: Female

DRUGS (1)
  1. HETLIOZ [Suspect]
     Active Substance: TASIMELTEON
     Indication: CIRCADIAN RHYTHM SLEEP DISORDER
     Dosage: 20 MG, 1 HOUR BEFORE BED
     Route: 048
     Dates: start: 201606

REACTIONS (3)
  - Idiopathic urticaria [Unknown]
  - Adverse drug reaction [Unknown]
  - Angioedema [Unknown]

NARRATIVE: CASE EVENT DATE: 201608
